FAERS Safety Report 14805738 (Version 1)
Quarter: 2018Q2

REPORT INFORMATION
  Report Type: Report from Study
  Country: US (occurrence: US)
  Receive Date: 20180425
  Receipt Date: 20180425
  Transmission Date: 20180711
  Serious: Yes (Other)
  Sender: FDA-Public Use
  Company Number: US-ASTRAZENECA-2018SE50873

PATIENT
  Age: 686 Month
  Sex: Male

DRUGS (6)
  1. FASLODEX [Suspect]
     Active Substance: FULVESTRANT
     Route: 030
  2. LYNPARZA [Suspect]
     Active Substance: OLAPARIB
     Route: 048
  3. ADRIAMYCIN [Suspect]
     Active Substance: DOXORUBICIN HYDROCHLORIDE
     Route: 065
  4. TAXOL [Suspect]
     Active Substance: PACLITAXEL
     Route: 065
  5. CYTOXAN [Suspect]
     Active Substance: CYCLOPHOSPHAMIDE
     Route: 065
  6. ARIMIDEX [Suspect]
     Active Substance: ANASTROZOLE
     Indication: BREAST CANCER MALE
     Dosage: UNKNOWN DOSE
     Route: 048

REACTIONS (4)
  - Performance status decreased [Unknown]
  - Malignant neoplasm progression [Unknown]
  - Off label use [Unknown]
  - Drug ineffective [Unknown]

NARRATIVE: CASE EVENT DATE: 201702
